FAERS Safety Report 11503298 (Version 2)
Quarter: 2016Q3

REPORT INFORMATION
  Report Type: Spontaneous
  Country: US (occurrence: US)
  Receive Date: 20150914
  Receipt Date: 20160915
  Transmission Date: 20161109
  Serious: No
  Sender: FDA-Public Use
  Company Number: US-ASTELLAS-2015US026078

PATIENT
  Age: 74 Year
  Sex: Male

DRUGS (4)
  1. XTANDI [Suspect]
     Active Substance: ENZALUTAMIDE
     Route: 048
  2. XTANDI [Suspect]
     Active Substance: ENZALUTAMIDE
     Indication: PROSTATE CANCER
     Route: 048
     Dates: start: 201507
  3. XTANDI [Suspect]
     Active Substance: ENZALUTAMIDE
     Indication: PROSTATE CANCER METASTATIC
     Dosage: 160 MG, (40 MG X 4 CAPSULES) ONCE DAILY
     Route: 048
     Dates: start: 201505
  4. XTANDI [Suspect]
     Active Substance: ENZALUTAMIDE
     Indication: METASTASES TO SPINE
     Route: 048

REACTIONS (9)
  - Malaise [Recovering/Resolving]
  - Nerve compression [Recovered/Resolved]
  - Muscle strain [Recovered/Resolved]
  - Muscle spasms [Not Recovered/Not Resolved]
  - Product label issue [Unknown]
  - Fatigue [Not Recovered/Not Resolved]
  - Prescribed underdose [Unknown]
  - Hot flush [Unknown]
  - Drug intolerance [Unknown]

NARRATIVE: CASE EVENT DATE: 201504
